FAERS Safety Report 7128006-2 (Version None)
Quarter: 2010Q4

REPORT INFORMATION
  Report Type: 
  Country: None (occurrence: None)
  Receive Date: 20101130
  Receipt Date: 20101116
  Transmission Date: 20110411
  Serious: Yes (Other)
  Sender: FDA-Public Use
  Company Number: PHHY2010CA78402

PATIENT
  Sex: Male

DRUGS (10)
  1. AFINITOR [Suspect]
     Indication: RENAL CELL CARCINOMA
     Dosage: 10 MG
     Route: 048
     Dates: start: 20100925
  2. AFINITOR [Suspect]
     Dosage: 05 MG
     Route: 048
  3. PANTHENOL [Concomitant]
  4. EACA [Concomitant]
  5. ACTUSS [Concomitant]
  6. METOPROLOL [Concomitant]
  7. EZETROL [Concomitant]
  8. NURFLEX [Concomitant]
  9. LASIX [Concomitant]
  10. PALAFER [Concomitant]

REACTIONS (1)
  - STOMATITIS [None]
